FAERS Safety Report 19135783 (Version 11)
Quarter: 2021Q2

REPORT INFORMATION
  Report Type: Spontaneous
  Country: DE (occurrence: DE)
  Receive Date: 20210414
  Receipt Date: 20210609
  Transmission Date: 20210717
  Serious: Yes (Hospitalization, Other)
  Sender: FDA-Public Use
  Company Number: NVSC2021DE082192

PATIENT
  Age: 62 Year
  Sex: Female
  Weight: 65 kg

DRUGS (21)
  1. MIRTAZAPINE. [Suspect]
     Active Substance: MIRTAZAPINE
     Indication: INSOMNIA
     Dosage: UNK
     Route: 065
  2. RANOLAZINE. [Interacting]
     Active Substance: RANOLAZINE
     Indication: ANGINA PECTORIS
  3. RASAGILINE. [Interacting]
     Active Substance: RASAGILINE
     Indication: DEPRESSIVE SYMPTOM
  4. PRAMIPEXOLE. [Suspect]
     Active Substance: PRAMIPEXOLE
     Indication: PARKINSON^S DISEASE
     Dosage: UNK (DOSE REDUCED)
     Route: 065
  5. PRAMIPEXOLE. [Suspect]
     Active Substance: PRAMIPEXOLE
     Dosage: 1 MG, UNKNOWN
     Route: 065
  6. BENSERAZIDE,LEVODOPA [Suspect]
     Active Substance: BENSERAZIDE\LEVODOPA
     Indication: PARKINSON^S DISEASE
     Dosage: 1 DF, QD (200 MG LEVODOPA, 50 MG BENSERAZIDE)
     Route: 065
  7. BENSERAZIDE,LEVODOPA [Suspect]
     Active Substance: BENSERAZIDE\LEVODOPA
     Dosage: 200/50 MG/MG PER DAY (RETARD)
     Route: 065
  8. MOCLOBEMIDE [Interacting]
     Active Substance: MOCLOBEMIDE
     Indication: PARKINSON^S DISEASE
     Dosage: 150 MG, QD(ABOUT 1 YEAR)
     Route: 065
  9. AGOMELATINE [Suspect]
     Active Substance: AGOMELATINE
     Indication: INSOMNIA
     Dosage: 50 MG, QD
     Route: 065
  10. RASAGILINE. [Interacting]
     Active Substance: RASAGILINE
     Indication: PARKINSON^S DISEASE
     Dosage: 1 MG, QD
     Route: 065
  11. MOCLOBEMIDE [Interacting]
     Active Substance: MOCLOBEMIDE
     Indication: DEPRESSION
     Dosage: 450 MG, QD (THE CURRENT DOSE)
     Route: 065
  12. MOCLOBEMIDE [Interacting]
     Active Substance: MOCLOBEMIDE
     Indication: DEPRESSIVE SYMPTOM
  13. LEVOTHYROXINE. [Concomitant]
     Active Substance: LEVOTHYROXINE
     Indication: HYPOTHYROIDISM
     Dosage: 100 UG, PER DAY
     Route: 065
  14. PRAMIPEXOLE. [Suspect]
     Active Substance: PRAMIPEXOLE
     Dosage: 0.53 NG, QD
     Route: 065
  15. RANOLAZINE. [Interacting]
     Active Substance: RANOLAZINE
     Indication: DEPRESSION
  16. RANOLAZINE. [Interacting]
     Active Substance: RANOLAZINE
     Indication: HYPERTENSION
     Dosage: 375 MG, QD (THE PATIENT TOOK RANOLAZINE OCCASIONALLY)
     Route: 065
  17. PRAMIPEXOLE. [Suspect]
     Active Substance: PRAMIPEXOLE
     Indication: DEPRESSIVE SYMPTOM
     Dosage: 0.525 MG, QD
     Route: 065
  18. MOCLOBEMIDE [Interacting]
     Active Substance: MOCLOBEMIDE
     Indication: HYPERTENSION
  19. TRAZODONE [Suspect]
     Active Substance: TRAZODONE HYDROCHLORIDE
     Indication: INSOMNIA
     Dosage: UNK (TREATMENT TRIAL)
     Route: 065
  20. BENSERAZIDE,LEVODOPA [Suspect]
     Active Substance: BENSERAZIDE\LEVODOPA
     Dosage: 125 MG, 3X PER DAY
     Route: 065
  21. AGOMELATINE [Suspect]
     Active Substance: AGOMELATINE
     Indication: DEPRESSIVE SYMPTOM

REACTIONS (10)
  - Autonomic nervous system imbalance [Recovered/Resolved]
  - Drug intolerance [Unknown]
  - Toxicity to various agents [Recovering/Resolving]
  - Contraindicated product administered [Unknown]
  - Drug ineffective [Unknown]
  - Serotonin syndrome [Recovered/Resolved]
  - Drug interaction [Unknown]
  - Condition aggravated [Recovered/Resolved]
  - Labelled drug-drug interaction issue [Recovered/Resolved]
  - Product use in unapproved indication [Unknown]
